FAERS Safety Report 21377190 (Version 1)
Quarter: 2022Q3

REPORT INFORMATION
  Report Type: Spontaneous
  Country: CN (occurrence: None)
  Receive Date: 20220926
  Receipt Date: 20220926
  Transmission Date: 20221026
  Serious: Yes (Disabling)
  Sender: FDA-Public Use
  Company Number: 2022A328501

PATIENT
  Age: 22638 Day
  Sex: Male
  Weight: 56 kg

DRUGS (1)
  1. IMFINZI [Suspect]
     Active Substance: DURVALUMAB
     Indication: Small cell lung cancer
     Route: 042
     Dates: start: 20211217, end: 20220519

REACTIONS (7)
  - Radiation pneumonitis [Recovered/Resolved with Sequelae]
  - Neuropathy peripheral [Recovered/Resolved with Sequelae]
  - Immune-mediated myocarditis [Recovered/Resolved with Sequelae]
  - Immune-mediated hepatitis [Recovered/Resolved with Sequelae]
  - Immune-mediated lung disease [Recovered/Resolved with Sequelae]
  - Immune-mediated myositis [Recovered/Resolved with Sequelae]
  - Hypothyroidism [Recovered/Resolved with Sequelae]

NARRATIVE: CASE EVENT DATE: 20220508
